FAERS Safety Report 10592574 (Version 2)
Quarter: 2015Q1

REPORT INFORMATION
  Report Type: Spontaneous
  Country: US (occurrence: US)
  Receive Date: 20141119
  Receipt Date: 20150105
  Transmission Date: 20150720
  Serious: No
  Sender: FDA-Public Use
  Company Number: US-PFIZER INC-2014317171

PATIENT
  Age: 52 Year
  Sex: Female

DRUGS (5)
  1. ASPIRIN. [Concomitant]
     Active Substance: ASPIRIN
     Indication: SYNCOPE
     Dosage: 81 MG, Q AM
     Route: 048
     Dates: start: 20110715, end: 20130905
  2. TRAMADOL [Concomitant]
     Active Substance: TRAMADOL
     Indication: ARTHRALGIA
     Dosage: 50 MG, Q 4 TO 6 HR
     Route: 048
     Dates: start: 20110512, end: 20130915
  3. ZANTAC [Concomitant]
     Active Substance: RANITIDINE HYDROCHLORIDE
     Indication: GASTRITIS
     Dosage: 75 MG, 2 PO BID
     Route: 048
     Dates: start: 20110512, end: 20130207
  4. CELEBREX [Suspect]
     Active Substance: CELECOXIB
     Indication: ARTHRALGIA
     Dosage: 1 DF, QD
     Route: 048
     Dates: start: 20110715, end: 20110721
  5. HYDROCHLOROTHIAZIDE/LISINOPRIL [Concomitant]
     Indication: HYPERTENSION
     Dosage: 1 (HYDROCHLOROTHIAZIDE 12.5 MG/LISINOPRIL 20 MG), QD
     Route: 048
     Dates: start: 20110715, end: 20130207

REACTIONS (4)
  - Dizziness [Recovered/Resolved]
  - Drug hypersensitivity [Unknown]
  - Nausea [Recovered/Resolved]
  - Constipation [Recovered/Resolved]

NARRATIVE: CASE EVENT DATE: 20110715
